FAERS Safety Report 4358596-4 (Version None)
Quarter: 2004Q2

REPORT INFORMATION
  Report Type: 
  Country: None (occurrence: None)
  Receive Date: 20040514
  Receipt Date: 20040504
  Transmission Date: 20050107
  Serious: Yes (Hospitalization)
  Sender: FDA-Public Use
  Company Number: RB-700-2004

PATIENT
  Age: 16 Year
  Sex: Male

DRUGS (2)
  1. BUPRENORPHINE HYDROCHLORIDE [Suspect]
     Dosage: PO
     Route: 048
     Dates: start: 20040221, end: 20040221
  2. CANNABIS [Concomitant]

REACTIONS (4)
  - ANURIA [None]
  - DRUG ABUSER [None]
  - MENTAL DISORDER [None]
  - NAUSEA [None]
